FAERS Safety Report 19030547 (Version 1)
Quarter: 2021Q1

REPORT INFORMATION
  Report Type: Spontaneous
  Country: US (occurrence: US)
  Receive Date: 20210319
  Receipt Date: 20210319
  Transmission Date: 20210420
  Serious: Yes (Death, Hospitalization)
  Sender: FDA-Public Use
  Company Number: US-PFIZER INC-2021297528

PATIENT
  Age: 68 Year
  Sex: Female

DRUGS (10)
  1. FLUCONAZOLE. [Concomitant]
     Active Substance: FLUCONAZOLE
     Indication: ENTEROBACTER INFECTION
     Dosage: UNK
     Dates: start: 2020, end: 2020
  2. DOXYCYCLINE. [Concomitant]
     Active Substance: DOXYCYCLINE
     Indication: ENTEROBACTER INFECTION
     Dosage: UNK
     Dates: start: 2020, end: 2020
  3. MICAFUNGIN. [Concomitant]
     Active Substance: MICAFUNGIN SODIUM
     Indication: ENTEROBACTER INFECTION
     Dosage: UNK
     Dates: start: 2020, end: 2020
  4. CEFTRIAXONE. [Concomitant]
     Active Substance: CEFTRIAXONE
     Indication: ENTEROBACTER INFECTION
     Dosage: UNK
     Dates: start: 2020, end: 2020
  5. AZTREONAM. [Suspect]
     Active Substance: AZTREONAM
     Indication: ENTEROBACTER INFECTION
     Dosage: UNK
     Dates: start: 2020
  6. AMPICILLIN [Concomitant]
     Active Substance: AMPICILLIN
     Indication: ENTEROBACTER INFECTION
     Dosage: UNK
     Dates: start: 2020, end: 2020
  7. TIGECYCLINE. [Suspect]
     Active Substance: TIGECYCLINE
     Indication: ENTEROBACTER INFECTION
     Dosage: 100 MG, 2X/DAY (HIGH?DOSE)
     Dates: start: 2020
  8. AVIBACTAM SODIUM/CEFTAZIDIME PENTAHYDRATE [Suspect]
     Active Substance: AVIBACTAM SODIUM\CEFTAZIDIME
     Indication: ENTEROBACTER INFECTION
     Dosage: UNK
     Dates: start: 2020
  9. MEROPENEM. [Suspect]
     Active Substance: MEROPENEM
     Indication: ENTEROBACTER INFECTION
     Dosage: UNK
  10. PIPERACILLIN AND TAZOBACTAM [Concomitant]
     Active Substance: PIPERACILLIN SODIUM\TAZOBACTAM SODIUM
     Indication: ENTEROBACTER INFECTION
     Dosage: UNK
     Dates: start: 2020, end: 2020

REACTIONS (3)
  - Septic shock [Fatal]
  - Off label use [Fatal]
  - Drug ineffective for unapproved indication [Fatal]

NARRATIVE: CASE EVENT DATE: 2020
